FAERS Safety Report 9589356 (Version 1)
Quarter: 2013Q4

REPORT INFORMATION
  Report Type: Spontaneous
  Country: US (occurrence: US)
  Receive Date: 20131003
  Receipt Date: 20131003
  Transmission Date: 20140711
  Serious: No
  Sender: FDA-Public Use
  Company Number: US-AMGEN-USASP2012069857

PATIENT
  Sex: Female

DRUGS (8)
  1. ENBREL [Suspect]
     Indication: JUVENILE IDIOPATHIC ARTHRITIS
     Dosage: 50 MG, QWK
     Route: 058
  2. METHOTREXATE [Concomitant]
     Dosage: 2.5 MG, UNK
  3. MULTIVITAMINS, PLAIN [Concomitant]
     Dosage: UNK
  4. CALCIUM +D                         /00944201/ [Concomitant]
     Dosage: UNK
  5. CLARITIN                           /00413701/ [Concomitant]
     Dosage: 10 MG, UNK
  6. MOTRIN [Concomitant]
     Dosage: 400 MG, UNK
  7. VITAMIN D3 [Concomitant]
     Dosage: UNK
  8. VITAMIN B 12 [Concomitant]
     Dosage: 50 MUG, UNK

REACTIONS (1)
  - Helicobacter infection [Unknown]
